FAERS Safety Report 6898957-2 (Version None)
Quarter: 2010Q3

REPORT INFORMATION
  Report Type: 
  Country: None (occurrence: None)
  Receive Date: 20100802
  Receipt Date: 20071204
  Transmission Date: 20110219
  Serious: No
  Sender: FDA-Public Use
  Company Number: US-PFIZER INC-2007093605

PATIENT
  Sex: Male
  Weight: 95.7 kg

DRUGS (3)
  1. LYRICA [Suspect]
     Dates: start: 20071120, end: 20071121
  2. GABAPENTIN [Suspect]
  3. AMITRIPTYLINE HYDROCHLORIDE [Suspect]

REACTIONS (2)
  - DIZZINESS [None]
  - RASH [None]
